FAERS Safety Report 17987764 (Version 3)
Quarter: 2020Q3

REPORT INFORMATION
  Report Type: Spontaneous
  Country: JP (occurrence: JP)
  Receive Date: 20200707
  Receipt Date: 20200804
  Transmission Date: 20201103
  Serious: Yes (Hospitalization, Other)
  Sender: FDA-Public Use
  Company Number: JP-AMGEN-JPNSP2020107162

PATIENT
  Age: 62 Year
  Sex: Female

DRUGS (3)
  1. ASPARA?CA [Concomitant]
     Active Substance: CALCIUM ASPARTATE
     Indication: OSTEOPOROSIS
     Dosage: 600 MILLIGRAM, QD
     Dates: start: 20090427, end: 20191216
  2. EVENITY [Suspect]
     Active Substance: ROMOSOZUMAB-AQQG
     Indication: OSTEOPOROSIS
     Dosage: 210 MILLIGRAM
     Route: 058
     Dates: start: 20191216, end: 20191216
  3. EDIROL [Concomitant]
     Active Substance: ELDECALCITOL
     Indication: OSTEOPOROSIS
     Dosage: 0.75 MICROGRAM, QD
     Dates: start: 20110502, end: 20191216

REACTIONS (4)
  - Hypoxic-ischaemic encephalopathy [Unknown]
  - Post procedural myocardial infarction [Unknown]
  - Cardiac valve disease [Unknown]
  - Mitral valve incompetence [Recovered/Resolved with Sequelae]

NARRATIVE: CASE EVENT DATE: 20200118
